FAERS Safety Report 14166033 (Version 1)
Quarter: 2017Q4

REPORT INFORMATION
  Report Type: Spontaneous
  Country: JP (occurrence: JP)
  Receive Date: 20171107
  Receipt Date: 20171107
  Transmission Date: 20180321
  Serious: Yes (Other)
  Sender: FDA-Public Use
  Company Number: JP-MYLANLABS-2017M1068447

PATIENT
  Age: 72 Year
  Sex: Female

DRUGS (3)
  1. PREDNISOLONE. [Suspect]
     Active Substance: PREDNISOLONE
     Dosage: 5MG/DAY; INCREASED TO 20MG/DAY AT THE AGE OF 72 YEARS FOLLOWED BY A DECREASE BACK TO 5MG/DAY
     Route: 065
  2. CICLOSPORIN [Concomitant]
     Active Substance: CYCLOSPORINE
     Indication: ORGANISING PNEUMONIA
     Dosage: 100 MG/DAY
     Route: 065
  3. PREDNISOLONE. [Suspect]
     Active Substance: PREDNISOLONE
     Indication: ORGANISING PNEUMONIA
     Dosage: 40 MG/DAY; REDUCED TO 5MG/DAY OVER 7 MONTHS
     Route: 065

REACTIONS (2)
  - Osteoporosis [Unknown]
  - Diabetes mellitus [Unknown]
